FAERS Safety Report 17744849 (Version 1)
Quarter: 2020Q2

REPORT INFORMATION
  Report Type: Spontaneous
  Country: US (occurrence: US)
  Receive Date: 20200504
  Receipt Date: 20200504
  Transmission Date: 20200714
  Serious: No
  Sender: FDA-Public Use
  Company Number: US-BAUSCH-BL-2020-007998

PATIENT
  Age: 61 Year
  Sex: Female
  Weight: 55.84 kg

DRUGS (1)
  1. ALDARA [Suspect]
     Active Substance: IMIQUIMOD
     Indication: PRODUCT USED FOR UNKNOWN INDICATION
     Dosage: ONCE EVERY EVENING
     Route: 061
     Dates: start: 20200214, end: 20200310

REACTIONS (4)
  - Erythema [Unknown]
  - Blister infected [Unknown]
  - Application site bruise [Unknown]
  - Application site swelling [Unknown]

NARRATIVE: CASE EVENT DATE: 2020
